FAERS Safety Report 8305555 (Version 10)
Quarter: 2016Q3

REPORT INFORMATION
  Report Type: Spontaneous
  Country: US (occurrence: US)
  Receive Date: 20111221
  Receipt Date: 20160805
  Transmission Date: 20161109
  Serious: Yes (Hospitalization, Other)
  Sender: FDA-Public Use
  Company Number: US-MERCK-1112USA02415

PATIENT
  Sex: Male
  Weight: 89.8 kg

DRUGS (6)
  1. FOSAMAX [Suspect]
     Active Substance: ALENDRONATE SODIUM
     Dosage: 70 MG, UNKNOWN
     Route: 048
     Dates: start: 19991207, end: 20101116
  2. FOSAMAX PLUS D [Suspect]
     Active Substance: ALENDRONATE SODIUM\CHOLECALCIFEROL
     Indication: OSTEOPOROSIS
     Dosage: 70MG/2800 IU, QW
     Route: 048
     Dates: start: 20050812, end: 200912
  3. FOSAMAX [Suspect]
     Active Substance: ALENDRONATE SODIUM
     Indication: OSTEOPOROSIS
     Dosage: 10 MG, QD
     Route: 048
     Dates: start: 19971106
  4. ALENDRONATE SODIUM. [Suspect]
     Active Substance: ALENDRONATE SODIUM
     Indication: OSTEOPOROSIS
     Dosage: 70 MG, UNK
  5. CALCIUM (UNSPECIFIED) [Concomitant]
     Active Substance: CALCIUM
     Indication: PRODUCT USED FOR UNKNOWN INDICATION
     Dosage: UNK, UNKNOWN
     Route: 065
  6. DAYPRO [Concomitant]
     Active Substance: OXAPROZIN
     Indication: BACK PAIN
     Dosage: UNK, UNKNOWN
     Route: 065
     Dates: start: 19971010

REACTIONS (54)
  - Tonsillectomy [Unknown]
  - Micrographic skin surgery [Unknown]
  - Cardiac failure congestive [Unknown]
  - Neuropathy peripheral [Unknown]
  - Pubis fracture [Unknown]
  - Body height decreased [Unknown]
  - Drug ineffective [Unknown]
  - Transient ischaemic attack [Unknown]
  - Radiculopathy [Unknown]
  - Anaemia postoperative [Unknown]
  - Vertebroplasty [Unknown]
  - Hypertension [Unknown]
  - Hyperlipidaemia [Unknown]
  - Intervertebral disc protrusion [Unknown]
  - Angiopathy [Unknown]
  - Bronchitis [Unknown]
  - Spondylolisthesis [Unknown]
  - Coronary artery bypass [Unknown]
  - Femur fracture [Unknown]
  - Fractured sacrum [Unknown]
  - Osteopenia [Unknown]
  - Kyphosis [Unknown]
  - Radiculopathy [Unknown]
  - Myalgia [Unknown]
  - Lethargy [Unknown]
  - Atrial fibrillation [Unknown]
  - Open reduction of fracture [Unknown]
  - Rib fracture [Unknown]
  - Lumbar spinal stenosis [Unknown]
  - Hypertrophy [Unknown]
  - Contusion [Unknown]
  - Fall [Unknown]
  - Pain in extremity [Unknown]
  - Acute kidney injury [Recovered/Resolved]
  - Osteoarthritis [Unknown]
  - Intervertebral disc degeneration [Unknown]
  - Spinal disorder [Unknown]
  - Escherichia infection [Recovered/Resolved]
  - Open reduction of fracture [Unknown]
  - Lumbar spinal stenosis [Unknown]
  - Calcinosis [Unknown]
  - Muscle strain [Unknown]
  - Inappropriate schedule of drug administration [Unknown]
  - Upper respiratory tract infection [Unknown]
  - Fall [Unknown]
  - Facet joint syndrome [Unknown]
  - Gastrooesophageal reflux disease [Unknown]
  - Cellulitis [Recovering/Resolving]
  - Asthma [Unknown]
  - Chronic kidney disease [Unknown]
  - Appendicectomy [Unknown]
  - Femur fracture [Unknown]
  - Bursitis [Unknown]
  - Compression fracture [Unknown]

NARRATIVE: CASE EVENT DATE: 19971106
